FAERS Safety Report 4603303-0 (Version None)
Quarter: 2005Q1

REPORT INFORMATION
  Report Type: 
  Country: None (occurrence: None)
  Receive Date: 20050307
  Receipt Date: 20050224
  Transmission Date: 20050727
  Serious: Yes (Death, Hospitalization)
  Sender: FDA-Public Use
  Company Number: 200510479GDS

PATIENT
  Age: 72 Year
  Sex: Male

DRUGS (3)
  1. ADIRO 100 (ACETYLSALICYLIC ACID) [Suspect]
     Indication: ACUTE MYOCARDIAL INFARCTION
     Dosage: 100 NG, QD, ORAL
     Route: 048
     Dates: start: 20010812
  2. ACTIVASE [Suspect]
     Indication: ACUTE MYOCARDIAL INFARCTION
     Dosage: 100 MG, TOTAL DAILY, INTRAVENOIUS
     Route: 042
     Dates: start: 20010812
  3. OMEPRAZOLE [Concomitant]

REACTIONS (3)
  - CARDIOGENIC SHOCK [None]
  - DRUG INTERACTION [None]
  - GASTROINTESTINAL HAEMORRHAGE [None]
